FAERS Safety Report 14260798 (Version 1)
Quarter: 2017Q4

REPORT INFORMATION
  Report Type: Spontaneous
  Country: US (occurrence: US)
  Receive Date: 20171207
  Receipt Date: 20171207
  Transmission Date: 20180321
  Serious: Yes (Other)
  Sender: FDA-Public Use
  Company Number: US-SA-2017SA236703

PATIENT
  Age: 59 Year
  Sex: Male

DRUGS (4)
  1. DAPSONE. [Concomitant]
     Active Substance: DAPSONE
     Indication: ANTIFUNGAL PROPHYLAXIS
     Route: 065
  2. FLUDARABINE PHOSPHATE. [Suspect]
     Active Substance: FLUDARABINE PHOSPHATE
     Indication: CHRONIC LYMPHOCYTIC LEUKAEMIA
     Route: 065
     Dates: start: 201302
  3. CYCLOPHOSPHAMIDE. [Suspect]
     Active Substance: CYCLOPHOSPHAMIDE
     Indication: CHRONIC LYMPHOCYTIC LEUKAEMIA
     Route: 065
     Dates: start: 201302
  4. RITUXIMAB. [Suspect]
     Active Substance: RITUXIMAB
     Indication: CHRONIC LYMPHOCYTIC LEUKAEMIA
     Route: 065
     Dates: start: 201302

REACTIONS (9)
  - Lung infiltration [Recovered/Resolved]
  - Productive cough [Recovered/Resolved]
  - Pseudomonas test positive [Unknown]
  - Pulmonary granuloma [Recovered/Resolved]
  - Empyema [Unknown]
  - Pneumococcal infection [Unknown]
  - Pleural effusion [Unknown]
  - Pneumocystis jirovecii pneumonia [Recovered/Resolved]
  - Pulmonary mass [Recovered/Resolved]

NARRATIVE: CASE EVENT DATE: 201401
